FAERS Safety Report 9745236 (Version 1)
Quarter: 2013Q4

REPORT INFORMATION
  Report Type: Spontaneous
  Country: US (occurrence: US)
  Receive Date: 20131211
  Receipt Date: 20131211
  Transmission Date: 20140711
  Serious: Yes (Hospitalization)
  Sender: FDA-Public Use
  Company Number: US-PFIZER INC-2013351958

PATIENT
  Age: 86 Year
  Sex: Male

DRUGS (1)
  1. SUTENT [Suspect]
     Indication: RENAL CANCER
     Dosage: 37.5 MG, DAILY
     Route: 048
     Dates: start: 20131012, end: 20131116

REACTIONS (3)
  - Disease progression [Unknown]
  - Renal cancer [Unknown]
  - Fatigue [Unknown]
